FAERS Safety Report 19694151 (Version 2)
Quarter: 2021Q3

REPORT INFORMATION
  Report Type: Report from Study
  Country: None (occurrence: US)
  Receive Date: 20210813
  Receipt Date: 20210824
  Transmission Date: 20211014
  Serious: Yes (Hospitalization, Other)
  Sender: FDA-Public Use
  Company Number: US-ABBVIE-21K-163-4027051-00

PATIENT
  Age: 76 Year
  Sex: Male
  Weight: 114.86 kg

DRUGS (1)
  1. IMBRUVICA [Suspect]
     Active Substance: IBRUTINIB
     Indication: CHRONIC LYMPHOCYTIC LEUKAEMIA
     Route: 048
     Dates: start: 202010

REACTIONS (5)
  - Respiratory disorder [Unknown]
  - Pulmonary oedema [Unknown]
  - Peripheral swelling [Unknown]
  - Dyspnoea [Unknown]
  - Scar [Unknown]

NARRATIVE: CASE EVENT DATE: 20210711
